FAERS Safety Report 17801990 (Version 1)
Quarter: 2020Q2

REPORT INFORMATION
  Report Type: Spontaneous
  Country: SE (occurrence: SE)
  Receive Date: 20200519
  Receipt Date: 20200519
  Transmission Date: 20200714
  Serious: Yes (Hospitalization)
  Sender: FDA-Public Use
  Company Number: SE-SA-2020SA125571

PATIENT
  Age: 75 Year
  Sex: Male

DRUGS (33)
  1. ONDANSETRON HYDROCHLORIDE DIHYDRATE [Concomitant]
     Active Substance: ONDANSETRON HYDROCHLORIDE
     Dosage: ACCORDING TO A SEPARATE PROCESSING SCHEME
     Dates: start: 20200402
  2. OXASCAND [Concomitant]
     Active Substance: OXAZEPAM
     Dosage: 5 MG, PRN (MAX 4 PCS PER DAY)
     Dates: start: 20191221
  3. GLYCERYL TRINITRATE [Concomitant]
     Active Substance: NITROGLYCERIN
     Dosage: 0.5 MG, PRN
     Route: 060
     Dates: start: 20150705
  4. ALVEDON [Concomitant]
     Active Substance: ACETAMINOPHEN
     Dosage: 3000 MG, QD
     Dates: start: 20200319
  5. BISOLVON [BROMHEXINE HYDROCHLORIDE] [Concomitant]
     Dosage: 5 ML, PRN (MAX 15 ML / DAY)
     Dates: start: 20191011
  6. BETAPRED [Concomitant]
     Active Substance: BETAMETHASONE SODIUM PHOSPHATE
     Dosage: ACCORDING TO A SEPARATE TREATMENT SCHEDULE
     Dates: start: 20200402
  7. MOVICOL [Concomitant]
     Active Substance: POLYETHYLENE GLYCOL 3350\POTASSIUM CHLORIDE\SODIUM BICARBONATE\SODIUM CHLORIDE
     Dosage: 1-2 BAGS VB, MAX 4 / DAY
     Dates: start: 20200102
  8. TARGINIQ ER [Concomitant]
     Active Substance: NALOXONE HYDROCHLORIDE\OXYCODONE HYDROCHLORIDE
     Dosage: 2 DF, QD
     Dates: start: 20200416
  9. PRIMPERAN [Concomitant]
     Active Substance: METOCLOPRAMIDE HYDROCHLORIDE
     Dosage: ACCORDING TO A SEPARATE PROCESSING SCHEME
     Dates: start: 20200402
  10. VITALIPID ADULT [Concomitant]
     Active Substance: ERGOCALCIFEROL\PHYTONADIONE\RETINOL\TOCOPHEROL
     Dosage: UNK
     Dates: start: 20200212
  11. ONDANSETRON TEVA [ONDANSETRON HYDROCHLORIDE] [Concomitant]
     Dosage: ACCORDING TO A SEPARATE TREATMENT SCHEDULE
     Dates: start: 20200402
  12. NATRIUMKLORID EVOLAN [Concomitant]
     Dosage: 2000 MG, QD
     Dates: start: 20191125
  13. ESOMEPRAZOL KRKA [Concomitant]
     Dosage: 80 MG, QD
     Dates: start: 20191025
  14. OXALIPLATIN. [Suspect]
     Active Substance: OXALIPLATIN
     Indication: OESOPHAGEAL CARCINOMA
     Dosage: 1 DF, TOTAL
     Route: 042
     Dates: start: 20200421, end: 20200421
  15. ACETYLCYSTEIN MEDA [Concomitant]
     Dosage: 400 MG, QD
     Dates: start: 20190814
  16. CANDEXETIL [Concomitant]
     Active Substance: CANDESARTAN
     Dosage: 32 MG, QD
     Dates: start: 20200320
  17. CILAXORAL [Concomitant]
     Active Substance: SODIUM PICOSULFATE
     Dosage: ACCORDING TO A SEPARATE TREATMENT SCHEDULE
     Dates: start: 20200311
  18. PRIMPERAN [Concomitant]
     Active Substance: METOCLOPRAMIDE HYDROCHLORIDE
     Dosage: EVE
     Dates: start: 20200402
  19. OXYNORM [Concomitant]
     Active Substance: OXYCODONE HYDROCHLORIDE
     Dosage: 0.5-1 ML IF NEEDED
     Dates: start: 20200322
  20. OXYNORM [Concomitant]
     Active Substance: OXYCODONE HYDROCHLORIDE
     Dosage: 1-2 CAPSULES IF NEEDED MAX 6 PCS PER DAY
     Dates: start: 20200325
  21. IRINOTECAN [Suspect]
     Active Substance: IRINOTECAN
     Indication: OESOPHAGEAL CARCINOMA
     Dosage: UNK
     Route: 042
     Dates: start: 20200421, end: 20200421
  22. OLIMEL E [Concomitant]
     Active Substance: AMINO ACIDS\DEXTROSE\ELECTROLYTES NOS\SOYBEAN OIL
     Dosage: UNK
     Dates: start: 20200212
  23. VANCOCIN [Concomitant]
     Active Substance: VANCOMYCIN HYDROCHLORIDE
     Dosage: 250 MG, QD
     Dates: start: 20200318
  24. INNOHEP [Concomitant]
     Active Substance: TINZAPARIN SODIUM
     Dosage: 2 DF, QD
     Dates: start: 20191010
  25. OMEPRAZOL BLUEFISH [Concomitant]
     Dosage: 20 MG, QD
     Dates: start: 20200402
  26. EMEND [Concomitant]
     Active Substance: APREPITANT
     Dosage: ACCORDING TO A SEPARATE TREATMENT SCHEDULE
     Dates: start: 20200402
  27. SOLUVIT [ASCORBIC ACID;BIOTIN;CALCIUM PANTOTHENATE;CYANOCOBALAMIN;FOLI [Concomitant]
     Active Substance: VITAMINS
     Dosage: VB
     Dates: start: 20200212
  28. AMLODIPINE [Concomitant]
     Active Substance: AMLODIPINE BESYLATE
     Dosage: 20 MG, QD
     Dates: start: 20200310
  29. ADDAVEN [Concomitant]
     Active Substance: ELECTROLYTES NOS\MINERALS
     Dosage: VB
     Dates: start: 20200212
  30. BETAPRED [Concomitant]
     Active Substance: BETAMETHASONE SODIUM PHOSPHATE
     Dosage: UNK
     Dates: start: 20190822
  31. BAKLOFEN MYLAN [Concomitant]
     Active Substance: BACLOFEN
     Dosage: 5 MG, PRN (MAX 15 MG / DAY)
     Dates: start: 20190916
  32. SOOLANTRA [Concomitant]
     Active Substance: IVERMECTIN
     Dosage: 1 UNK, PRN (1 TIME/DAY)
     Dates: start: 20171115
  33. VIAGRA [SILDENAFIL CITRATE] [Concomitant]
     Dosage: 100 MG, PRN(MAX 1 PER DAY)
     Dates: start: 20100726

REACTIONS (4)
  - Vision blurred [Recovered/Resolved]
  - Chest discomfort [Recovered/Resolved]
  - Temporomandibular joint syndrome [Recovered/Resolved]
  - Dizziness [Recovered/Resolved]

NARRATIVE: CASE EVENT DATE: 20200421
